FAERS Safety Report 18539104 (Version 4)
Quarter: 2021Q3

REPORT INFORMATION
  Report Type: Spontaneous
  Country: MY (occurrence: MY)
  Receive Date: 20201124
  Receipt Date: 20210703
  Transmission Date: 20211014
  Serious: Yes (Life-Threatening, Other)
  Sender: FDA-Public Use
  Company Number: NVSC2020MY308373

PATIENT
  Sex: Female

DRUGS (6)
  1. FULVESTRANT. [Suspect]
     Active Substance: FULVESTRANT
     Indication: BREAST CANCER
     Dosage: UNK
     Route: 065
     Dates: start: 20201030
  2. TYKERB [Suspect]
     Active Substance: LAPATINIB DITOSYLATE
     Indication: PRODUCT USED FOR UNKNOWN INDICATION
     Dosage: UNK
     Route: 065
  3. HERCEPTIN [Suspect]
     Active Substance: TRASTUZUMAB
     Indication: PRODUCT USED FOR UNKNOWN INDICATION
     Dosage: UNK
     Route: 065
  4. TREZILENT [Suspect]
     Active Substance: ALPELISIB
     Indication: BREAST CANCER
     Dosage: UNK
     Route: 065
     Dates: start: 20201030
  5. TREZILENT [Suspect]
     Active Substance: ALPELISIB
     Dosage: 200 MG
     Route: 065
  6. TREZILENT [Suspect]
     Active Substance: ALPELISIB
     Dosage: 225 MG, QD (ALTERNATE DOSE: 300 MG 150 MG) (AVERAGE DOSE:225 MG))
     Route: 065

REACTIONS (4)
  - Malignant neoplasm progression [Unknown]
  - Hyperglycaemia [Recovered/Resolved]
  - Product use in unapproved indication [Unknown]
  - Breast cancer [Unknown]

NARRATIVE: CASE EVENT DATE: 20201113
